FAERS Safety Report 19964259 (Version 18)
Quarter: 2022Q3

REPORT INFORMATION
  Report Type: Spontaneous
  Country: JP (occurrence: JP)
  Receive Date: 20211018
  Receipt Date: 20220913
  Transmission Date: 20221027
  Serious: Yes (Hospitalization, Other)
  Sender: FDA-Public Use
  Company Number: JP-BRISTOL-MYERS SQUIBB COMPANY-BMS-2021-093724

PATIENT
  Age: 73 Year
  Sex: Female
  Weight: 41 kg

DRUGS (36)
  1. YERVOY [Suspect]
     Active Substance: IPILIMUMAB
     Indication: Non-small cell lung cancer recurrent
     Dosage: 1 MG/KG
     Route: 041
     Dates: start: 20210805, end: 20210826
  2. OPDIVO [Suspect]
     Active Substance: NIVOLUMAB
     Indication: Non-small cell lung cancer recurrent
     Dosage: 360 MG
     Route: 041
     Dates: start: 20210805, end: 20210826
  3. OPDIVO [Suspect]
     Active Substance: NIVOLUMAB
     Route: 041
     Dates: start: 20210826, end: 20210829
  4. CARBOPLATIN [Suspect]
     Active Substance: CARBOPLATIN
     Indication: Non-small cell lung cancer recurrent
     Dosage: 425.5 MG
     Route: 065
     Dates: start: 20210805, end: 20210826
  5. PACLITAXEL [Suspect]
     Active Substance: PACLITAXEL
     Indication: Non-small cell lung cancer recurrent
     Route: 065
     Dates: start: 20210805, end: 20210826
  6. PEMETREXED [Suspect]
     Active Substance: PEMETREXED
     Indication: Non-small cell lung cancer recurrent
     Dosage: 636.5 MG
     Route: 065
     Dates: start: 20210805, end: 20210826
  7. MIYA-BM [Concomitant]
     Active Substance: CLOSTRIDIUM BUTYRICUM SPORES STRAIN M-55
     Indication: Gastrointestinal disorder prophylaxis
     Dosage: 2 DF, Q8H
     Route: 048
     Dates: start: 20210805
  8. MIYA-BM [Concomitant]
     Active Substance: CLOSTRIDIUM BUTYRICUM SPORES STRAIN M-55
  9. MIYA-BM [Concomitant]
     Active Substance: CLOSTRIDIUM BUTYRICUM SPORES STRAIN M-55
  10. MIYA-BM [Concomitant]
     Active Substance: CLOSTRIDIUM BUTYRICUM SPORES STRAIN M-55
  11. MIYA-BM [Concomitant]
     Active Substance: CLOSTRIDIUM BUTYRICUM SPORES STRAIN M-55
  12. CARBOCYSTEINE [Concomitant]
     Active Substance: CARBOCYSTEINE
     Indication: Productive cough
     Dosage: 500 MG, Q12H
     Route: 048
     Dates: start: 20210804
  13. CARBOCYSTEINE [Concomitant]
     Active Substance: CARBOCYSTEINE
     Route: 065
     Dates: start: 20210729
  14. CARBOCYSTEINE [Concomitant]
     Active Substance: CARBOCYSTEINE
  15. CARBOCYSTEINE [Concomitant]
     Active Substance: CARBOCYSTEINE
  16. CARBOCYSTEINE [Concomitant]
     Active Substance: CARBOCYSTEINE
  17. PROCATEROL HYDROCHLORIDE [Concomitant]
     Active Substance: PROCATEROL HYDROCHLORIDE
     Indication: Cough
     Dosage: 25 UG, Q12H
     Route: 048
     Dates: start: 20210804
  18. PROCATEROL HYDROCHLORIDE [Concomitant]
     Active Substance: PROCATEROL HYDROCHLORIDE
  19. PROCATEROL HYDROCHLORIDE [Concomitant]
     Active Substance: PROCATEROL HYDROCHLORIDE
  20. PROCATEROL HYDROCHLORIDE [Concomitant]
     Active Substance: PROCATEROL HYDROCHLORIDE
  21. PROCATEROL HYDROCHLORIDE [Concomitant]
     Active Substance: PROCATEROL HYDROCHLORIDE
  22. CALONAL [Concomitant]
     Active Substance: ACETAMINOPHEN
     Indication: Analgesic therapy
     Dosage: 3 DF, Q8H
     Route: 048
     Dates: start: 20210829
  23. CALONAL [Concomitant]
     Active Substance: ACETAMINOPHEN
     Route: 065
     Dates: start: 20210804
  24. CALONAL [Concomitant]
     Active Substance: ACETAMINOPHEN
  25. CALONAL [Concomitant]
     Active Substance: ACETAMINOPHEN
  26. CALONAL [Concomitant]
     Active Substance: ACETAMINOPHEN
  27. DENOSUMAB [Concomitant]
     Active Substance: DENOSUMAB
     Indication: Product used for unknown indication
     Dosage: UNK
     Route: 065
     Dates: start: 20210806
  28. DENOSUMAB [Concomitant]
     Active Substance: DENOSUMAB
     Dates: start: 20210729, end: 20211001
  29. DENOSUMAB [Concomitant]
     Active Substance: DENOSUMAB
  30. DENOSUMAB [Concomitant]
     Active Substance: DENOSUMAB
  31. DENOSUMAB [Concomitant]
     Active Substance: DENOSUMAB
  32. FRESMIN-S [Concomitant]
     Indication: Chemotherapy side effect prophylaxis
     Route: 030
     Dates: start: 20210729, end: 20210729
  33. MAGNESIA [MAGNESIUM OXIDE] [Concomitant]
     Indication: Product used for unknown indication
     Route: 048
     Dates: start: 20210809
  34. PANVITAN [VITAMINS NOS] [Concomitant]
     Indication: Prophylaxis
     Route: 048
     Dates: start: 20210729, end: 20211001
  35. FRESMIN S [HYDROXOCOBALAMIN ACETATE] [Concomitant]
     Indication: Prophylaxis
     Dosage: FREQUENCY: ONCE EVERY 9 WEEKS
     Route: 030
     Dates: start: 20210729, end: 20210729
  36. PROCATEROL HYDROCHLORIDE [Concomitant]
     Active Substance: PROCATEROL HYDROCHLORIDE
     Indication: Antitussive therapy
     Route: 048
     Dates: start: 20210804

REACTIONS (5)
  - Immune-mediated myocarditis [Recovered/Resolved]
  - Drug-induced liver injury [Recovered/Resolved]
  - Drug eruption [Recovered/Resolved]
  - Pyrexia [Unknown]
  - Cancer pain [Unknown]

NARRATIVE: CASE EVENT DATE: 20210813
